FAERS Safety Report 4501479-7 (Version None)
Quarter: 2004Q4

REPORT INFORMATION
  Report Type: 
  Country: None (occurrence: None)
  Receive Date: 20041115
  Receipt Date: 20041105
  Transmission Date: 20050328
  Serious: Yes (Hospitalization)
  Sender: FDA-Public Use
  Company Number: US-MERCK-0411USA00842

PATIENT
  Age: 77 Year
  Sex: Male

DRUGS (3)
  1. VIOXX [Suspect]
     Indication: ARTHRITIS
     Route: 048
     Dates: start: 20020101, end: 20040101
  2. NEXIUM [Concomitant]
     Route: 065
  3. PROSCAR [Concomitant]
     Route: 048

REACTIONS (1)
  - COLONIC HAEMORRHAGE [None]
